FAERS Safety Report 19630860 (Version 1)
Quarter: 2021Q3

REPORT INFORMATION
  Report Type: Spontaneous
  Country: GB (occurrence: GB)
  Receive Date: 20210729
  Receipt Date: 20210729
  Transmission Date: 20211014
  Serious: Yes (Other)
  Sender: FDA-Public Use
  Company Number: GB-MYLANLABS-2021M1045508

PATIENT
  Age: 66 Year
  Sex: Female

DRUGS (1)
  1. WARFARIN [Suspect]
     Active Substance: WARFARIN
     Indication: PULMONARY EMBOLISM
     Dosage: UNK
     Route: 048
     Dates: start: 2012, end: 2021

REACTIONS (2)
  - Syncope [Unknown]
  - Chest wall haematoma [Not Recovered/Not Resolved]

NARRATIVE: CASE EVENT DATE: 20210710
